FAERS Safety Report 5981442-X (Version None)
Quarter: 2008Q4

REPORT INFORMATION
  Report Type: 
  Country: None (occurrence: None)
  Receive Date: 20081205
  Receipt Date: 20081201
  Transmission Date: 20090506
  Serious: Yes (Hospitalization, Other)
  Sender: FDA-Public Use
  Company Number: US-ELI_LILLY_AND_COMPANY-US200812000507

PATIENT
  Sex: Female

DRUGS (3)
  1. HUMULIN 70/30 [Suspect]
     Dates: start: 20010101
  2. HUMALOG [Suspect]
  3. ACTOS [Concomitant]

REACTIONS (8)
  - ABDOMINAL DISCOMFORT [None]
  - AGITATION [None]
  - DRUG DISPENSING ERROR [None]
  - FEAR [None]
  - MALAISE [None]
  - MOVEMENT DISORDER [None]
  - SUICIDE ATTEMPT [None]
  - THROAT TIGHTNESS [None]
